FAERS Safety Report 24438540 (Version 3)
Quarter: 2024Q4

REPORT INFORMATION
  Report Type: Spontaneous
  Country: US (occurrence: US)
  Receive Date: 20241015
  Receipt Date: 20241211
  Transmission Date: 20250115
  Serious: No
  Sender: ROCHE
  Company Number: US-ROCHE-10000103224

PATIENT
  Sex: Female

DRUGS (1)
  1. ACTEMRA [Suspect]
     Active Substance: TOCILIZUMAB
     Indication: Product used for unknown indication
     Route: 058

REACTIONS (9)
  - Product dose omission issue [Unknown]
  - Product preparation error [Unknown]
  - Device issue [Unknown]
  - No adverse event [Unknown]
  - Wrong technique in product usage process [Unknown]
  - Needle issue [Unknown]
  - Accidental exposure to product [Unknown]
  - Underdose [Unknown]
  - Product quality issue [Unknown]

NARRATIVE: CASE EVENT DATE: 20241009
